FAERS Safety Report 6677167-8 (Version None)
Quarter: 2010Q2

REPORT INFORMATION
  Report Type: 
  Country: None (occurrence: None)
  Receive Date: 20100412
  Receipt Date: 20100331
  Transmission Date: 20101027
  Serious: Yes (Other)
  Sender: FDA-Public Use
  Company Number: CA-MERCK-1004USA00745

PATIENT
  Age: 18 Year
  Sex: Female
  Weight: 50 kg

DRUGS (3)
  1. COZAAR [Suspect]
     Route: 048
  2. ALCOHOL [Suspect]
     Route: 065
  3. LEVOTHYROXINE SODIUM [Suspect]
     Route: 065

REACTIONS (2)
  - CARDIAC ARREST [None]
  - INTENTIONAL DRUG MISUSE [None]
